FAERS Safety Report 5389159-X (Version None)
Quarter: 2007Q3

REPORT INFORMATION
  Report Type: 
  Country: None (occurrence: None)
  Receive Date: 20070717
  Receipt Date: 20070712
  Transmission Date: 20080115
  Serious: Yes (Hospitalization)
  Sender: FDA-Public Use
  Company Number: US-AVENTIS-200713423EU

PATIENT
  Age: 83 Year
  Sex: Female

DRUGS (9)
  1. ENOXAPARIN SODIUM [Suspect]
     Route: 058
     Dates: start: 20070612
  2. PLACEBO [Suspect]
     Route: 048
     Dates: start: 20070611
  3. MOBIC [Concomitant]
     Indication: ARTHRITIS
     Route: 048
     Dates: start: 20050101, end: 20070604
  4. ZOCOR [Concomitant]
     Route: 048
     Dates: start: 19920101
  5. LOZIDE                             /00340102/ [Concomitant]
     Indication: HYPERTENSION
     Route: 048
     Dates: start: 20060101
  6. SYNTHROID [Concomitant]
     Indication: HYPOTHYROIDISM
     Route: 048
     Dates: start: 19920101
  7. NEXIUM [Concomitant]
     Route: 048
     Dates: start: 20060101
  8. ALAVERT [Concomitant]
     Route: 048
     Dates: start: 20020101
  9. CALCIUM CHLORIDE [Concomitant]
     Route: 048
     Dates: start: 20070604

REACTIONS (1)
  - PYREXIA [None]
